FAERS Safety Report 6261146-9 (Version None)
Quarter: 2009Q3

REPORT INFORMATION
  Report Type: 
  Country: None (occurrence: None)
  Receive Date: 20090709
  Receipt Date: 20090118
  Transmission Date: 20100115
  Serious: No
  Sender: FDA-Public Use
  Company Number: US-KINGPHARMUSA00001-K200900061

PATIENT
  Sex: Female

DRUGS (2)
  1. LEVOXYL [Suspect]
     Indication: HYPOTHYROIDISM
     Dosage: 100 MCG, QD
     Route: 048
     Dates: start: 20060101
  2. LEVOXYL [Suspect]
     Dosage: UNK
     Dates: start: 20081201

REACTIONS (3)
  - ERYTHEMA [None]
  - FLUSHING [None]
  - ROSACEA [None]
